FAERS Safety Report 21125374 (Version 2)
Quarter: 2022Q3

REPORT INFORMATION
  Report Type: Spontaneous
  Country: US (occurrence: US)
  Receive Date: 20220725
  Receipt Date: 20220929
  Transmission Date: 20221027
  Serious: Yes (Other)
  Sender: FDA-Public Use
  Company Number: US-NOVARTISPH-NVSC2022US162999

PATIENT

DRUGS (9)
  1. METHYLPHENIDATE [Suspect]
     Active Substance: METHYLPHENIDATE
     Indication: Foetal exposure during pregnancy
     Dosage: MATERNAL EXPOSURE DURING PREGNANCY: 20 MG
     Route: 064
  2. METHYLPHENIDATE [Suspect]
     Active Substance: METHYLPHENIDATE
     Dosage: MATERNAL EXPOSURE DURING PREGNANCY: 5 MG TWICE DAILY
     Route: 064
  3. METHYLPHENIDATE [Suspect]
     Active Substance: METHYLPHENIDATE
     Dosage: MATERNAL EXPOSURE DURING PREGNANCY: 10-15 MG, DAILY
     Route: 064
  4. METHYLPHENIDATE [Suspect]
     Active Substance: METHYLPHENIDATE
     Indication: Foetal exposure during pregnancy
     Dosage: MATERNAL EXPOSURE DURING PREGNANCY: 54 MG (54 MG CONTROLLED RELEASE (CR)
     Route: 064
  5. METHYLPHENIDATE [Suspect]
     Active Substance: METHYLPHENIDATE
     Dosage: MATERNAL EXPOSURE DURING PREGNANCY: 36 MG (CR) EACH MORNING
     Route: 064
  6. SERTRALINE [Suspect]
     Active Substance: SERTRALINE HYDROCHLORIDE
     Indication: Foetal exposure during pregnancy
     Dosage: MATERNAL EXPOSURE DURING PREGNANCY: 100 MG
     Route: 064
  7. DOXYLAMINE [Suspect]
     Active Substance: DOXYLAMINE
     Indication: Foetal exposure during pregnancy
     Dosage: MATERNAL EXPOSURE DURING PREGNANCY: 100 MG
     Route: 064
  8. VITAMIN B6 [Suspect]
     Active Substance: PYRIDOXINE HYDROCHLORIDE
     Indication: Foetal exposure during pregnancy
     Dosage: MATERNAL EXPOSURE DURING PREGNANCY: UNK
     Route: 064
  9. URSODIOL [Suspect]
     Active Substance: URSODIOL
     Indication: Foetal exposure during pregnancy
     Dosage: MATERNAL EXPOSURE DURING PREGNANCY: 300 MG TWICE DAILY
     Route: 064

REACTIONS (2)
  - Premature baby [Unknown]
  - Foetal exposure during pregnancy [Unknown]
